FAERS Safety Report 25887530 (Version 2)
Quarter: 2025Q4

REPORT INFORMATION
  Report Type: Report from Study
  Country: EU (occurrence: EU)
  Receive Date: 20251007
  Receipt Date: 20251013
  Transmission Date: 20260117
  Serious: Yes (Hospitalization)
  Sender: ABBVIE
  Company Number: EU-ABBVIE-6489655

PATIENT
  Age: 72 Year
  Sex: Female

DRUGS (1)
  1. FOSCARBIDOPA\FOSLEVODOPA [Suspect]
     Active Substance: FOSCARBIDOPA\FOSLEVODOPA
     Indication: Parkinson^s disease
     Dosage: ED 0.15 BR 0.36 LD 0.9
     Route: 058
     Dates: start: 20250505

REACTIONS (8)
  - Dizziness [Recovering/Resolving]
  - Unevaluable event [Unknown]
  - On and off phenomenon [Unknown]
  - Hallucination [Unknown]
  - Infection [Unknown]
  - Inflammation [Unknown]
  - Administration site reaction [Unknown]
  - Dyskinesia [Unknown]

NARRATIVE: CASE EVENT DATE: 20250101
